FAERS Safety Report 6859036-3 (Version None)
Quarter: 2010Q3

REPORT INFORMATION
  Report Type: 
  Country: None (occurrence: None)
  Receive Date: 20100719
  Receipt Date: 20080221
  Transmission Date: 20110219
  Serious: Yes (Other)
  Sender: FDA-Public Use
  Company Number: US-PFIZER INC-2008017493

PATIENT
  Sex: Female
  Weight: 73.5 kg

DRUGS (10)
  1. CHANTIX [Suspect]
     Indication: SMOKING CESSATION THERAPY
     Dates: start: 20080107, end: 20080212
  2. INSULIN [Suspect]
     Indication: DIABETES MELLITUS
     Dates: start: 20010101
  3. SYNTHROID [Concomitant]
  4. LIPITOR [Concomitant]
  5. TRICOR [Concomitant]
  6. LISINOPRIL [Concomitant]
  7. NORTRIPTYLINE [Concomitant]
  8. LITHIUM CARBONATE [Concomitant]
  9. DOXEPIN HCL [Concomitant]
  10. NEURONTIN [Concomitant]

REACTIONS (1)
  - BLOOD GLUCOSE DECREASED [None]
